FAERS Safety Report 26009515 (Version 2)
Quarter: 2025Q4

REPORT INFORMATION
  Report Type: Spontaneous
  Country: US (occurrence: US)
  Receive Date: 20251107
  Receipt Date: 20251125
  Transmission Date: 20260117
  Serious: No
  Sender: LEO PHARM
  Company Number: US-LEO Pharma-384038

PATIENT
  Age: 34 Year
  Sex: Male

DRUGS (1)
  1. ADBRY [Suspect]
     Active Substance: TRALOKINUMAB-LDRM
     Indication: Eczema
     Dosage: TREATMENT IS ONGOING??ADBRY 300 MG PEN, INJECT 2 PENS SUBCUTANEOUS ON DAY 1 (10/6/25), THEN INJECT 1
     Route: 058
     Dates: start: 20251006

REACTIONS (4)
  - Injection site swelling [Recovered/Resolved]
  - Injection site erythema [Recovered/Resolved]
  - Therapeutic response shortened [Unknown]
  - Injection site pruritus [Recovered/Resolved]
